FAERS Safety Report 17533101 (Version 2)
Quarter: 2020Q2

REPORT INFORMATION
  Report Type: Spontaneous
  Country: US (occurrence: US)
  Receive Date: 20200312
  Receipt Date: 20200514
  Transmission Date: 20200713
  Serious: Yes (Hospitalization, Other)
  Sender: FDA-Public Use
  Company Number: US-SAOL THERAPEUTICS-2020SAO00064

PATIENT
  Age: 27 Year
  Sex: Male
  Weight: 60.32 kg

DRUGS (2)
  1. LIORESAL [Suspect]
     Active Substance: BACLOFEN
     Indication: MUSCLE SPASTICITY
     Dosage: 589.7 ?G, \DAY
     Route: 037
     Dates: start: 20200217
  2. UNSPECIFIED CONCOMIITANT PRODUCTS [Concomitant]

REACTIONS (3)
  - Device failure [Recovered/Resolved]
  - Muscle tightness [Unknown]
  - Urinary tract infection [Unknown]

NARRATIVE: CASE EVENT DATE: 202002
